FAERS Safety Report 11171341 (Version 1)
Quarter: 2015Q2

REPORT INFORMATION
  Report Type: Spontaneous
  Country: US (occurrence: None)
  Receive Date: 20150515
  Receipt Date: 20150515
  Transmission Date: 20150821
  Serious: Yes (Hospitalization, Other)
  Sender: FDA-Public Use
  Company Number: 2015003215

PATIENT
  Age: 63 Year
  Sex: Male
  Weight: 145 kg

DRUGS (6)
  1. CIMZIA [Suspect]
     Active Substance: CERTOLIZUMAB PEGOL
     Indication: RHEUMATOID ARTHRITIS
     Route: 058
     Dates: start: 2014, end: 201501
  2. GABAPENTIN. [Concomitant]
     Active Substance: GABAPENTIN
  3. PLAQUENIL (HYDROXYCHOLOROQUINE PHOSPHATE) [Concomitant]
  4. PREDNISONE (PREDNISONE ACETATE) [Concomitant]
  5. WARFARIN (WARFARIN SODIUM) [Concomitant]
     Active Substance: WARFARIN
  6. LANTUS [Concomitant]
     Active Substance: INSULIN GLARGINE

REACTIONS (1)
  - Pneumonia [None]

NARRATIVE: CASE EVENT DATE: 20150103
